FAERS Safety Report 23337262 (Version 5)
Quarter: 2025Q3

REPORT INFORMATION
  Report Type: Spontaneous
  Country: US (occurrence: US)
  Receive Date: 20231226
  Receipt Date: 20250828
  Transmission Date: 20251021
  Serious: No
  Sender: BIOGEN
  Company Number: US-BIOGEN-2020BI00957334

PATIENT
  Age: 52 Year
  Sex: Female

DRUGS (2)
  1. TYSABRI [Suspect]
     Active Substance: NATALIZUMAB
     Indication: Multiple sclerosis
     Dosage: INFUSED OVER 1 HOUR
     Route: 050
     Dates: start: 20111227
  2. TYSABRI [Suspect]
     Active Substance: NATALIZUMAB
     Dosage: INFUSED OVER 1 HOUR?300 MG/15ML INTRAVENOUS EVERY 6 WEEKS
     Route: 050
     Dates: start: 20170104

REACTIONS (2)
  - Prescribed underdose [Unknown]
  - Dizziness [Unknown]

NARRATIVE: CASE EVENT DATE: 20170104
